FAERS Safety Report 8953371 (Version 2)
Quarter: 2012Q4

REPORT INFORMATION
  Report Type: Report from Study
  Country: US (occurrence: US)
  Receive Date: 20121206
  Receipt Date: 20121220
  Transmission Date: 20130627
  Serious: Yes (Hospitalization)
  Sender: FDA-Public Use
  Company Number: US-JNJFOC-20121114796

PATIENT
  Age: 11 Year
  Sex: Female
  Weight: 28 kg

DRUGS (7)
  1. REMICADE [Suspect]
     Indication: CROHN^S DISEASE
     Route: 042
     Dates: start: 20110714
  2. 5-ASA [Concomitant]
  3. ANTIBIOTICS [Concomitant]
  4. FOLIC ACID [Concomitant]
  5. MEGESTROL [Concomitant]
  6. IRON [Concomitant]
  7. MIRALAX [Concomitant]

REACTIONS (1)
  - Crohn^s disease [Recovered/Resolved]
